FAERS Safety Report 8448140-4 (Version None)
Quarter: 2012Q2

REPORT INFORMATION
  Report Type: 
  Country: None (occurrence: None)
  Receive Date: 20120619
  Receipt Date: 20120613
  Transmission Date: 20120825
  Serious: Yes (Other)
  Sender: FDA-Public Use
  Company Number: BR-BAYER-2012-059046

PATIENT
  Sex: Female
  Weight: 14 kg

DRUGS (1)
  1. MIRENA [Suspect]
     Dosage: UNK UNK, CONT
     Route: 064
     Dates: start: 20080707, end: 20090306

REACTIONS (1)
  - EAR INFECTION BACTERIAL [None]
